FAERS Safety Report 10041519 (Version 2)
Quarter: 2014Q2

REPORT INFORMATION
  Report Type: Spontaneous
  Country: IL (occurrence: IL)
  Receive Date: 20140327
  Receipt Date: 20140516
  Transmission Date: 20141212
  Serious: Yes (Hospitalization)
  Sender: FDA-Public Use
  Company Number: IL-AMGEN-ISRSP2014021375

PATIENT
  Age: 68 Year
  Sex: Female

DRUGS (5)
  1. PROLIA [Suspect]
     Indication: OSTEOPOROSIS
     Dosage: UNK
     Route: 065
     Dates: start: 201311
  2. CIPRALEX                           /01588501/ [Concomitant]
  3. ELTROXIN [Concomitant]
  4. LIPITOR [Concomitant]
  5. NEXIUM                             /01479302/ [Concomitant]

REACTIONS (1)
  - Colitis ischaemic [Unknown]
